FAERS Safety Report 25550543 (Version 1)
Quarter: 2025Q3

REPORT INFORMATION
  Report Type: Spontaneous
  Country: US (occurrence: US)
  Receive Date: 20250714
  Receipt Date: 20250714
  Transmission Date: 20251020
  Serious: No
  Sender: SANOFI AVENTIS
  Company Number: US-SA-2025SA193815

PATIENT
  Age: 45 Year
  Sex: Female

DRUGS (3)
  1. DUPIXENT [Suspect]
     Active Substance: DUPILUMAB
     Indication: Dermatitis atopic
     Dosage: 300 MG, QOW
     Route: 058
     Dates: start: 202506
  2. DUPIXENT [Suspect]
     Active Substance: DUPILUMAB
     Indication: Intrauterine contraception
  3. EVEROLIMUS [Concomitant]
     Active Substance: EVEROLIMUS

REACTIONS (8)
  - Fatigue [Unknown]
  - Stomatitis [Unknown]
  - Oral pain [Unknown]
  - Mouth ulceration [Unknown]
  - Dysphagia [Unknown]
  - Erythema [Unknown]
  - Rash [Unknown]
  - Product use in unapproved indication [Unknown]

NARRATIVE: CASE EVENT DATE: 20250101
